FAERS Safety Report 24575608 (Version 1)
Quarter: 2024Q4

REPORT INFORMATION
  Report Type: Spontaneous
  Country: US (occurrence: None)
  Receive Date: 20241101
  Receipt Date: 20241101
  Transmission Date: 20250115
  Serious: No
  Sender: Public
  Company Number: None

PATIENT
  Age: 73 Year
  Sex: Female
  Weight: 63 kg

DRUGS (9)
  1. AZELASTINE HYDROCHLORIDE [Suspect]
     Active Substance: AZELASTINE HYDROCHLORIDE
     Indication: Product used for unknown indication
     Dosage: OTHER QUANTITY : 1 SPRAY(S)?FREQUENCY : TWICE A DAY?OTHER ROUTE : INTRANASAL SPRAY EA NOSTRIL?
     Route: 050
  2. LOSARTAN [Concomitant]
  3. CLOPIDOGREL [Concomitant]
  4. LEVOTHYROXINE [Concomitant]
  5. HYOSCYAMINE [Concomitant]
  6. Pantoprazole dr [Concomitant]
  7. VITAMIN D3 [Concomitant]
     Active Substance: CHOLECALCIFEROL
  8. Acidophilus [Concomitant]
  9. Systane eye products [Concomitant]

REACTIONS (6)
  - Dyspnoea [None]
  - Throat tightness [None]
  - Throat irritation [None]
  - Fatigue [None]
  - Myalgia [None]
  - Pain [None]

NARRATIVE: CASE EVENT DATE: 20241023
